FAERS Safety Report 8074889-1 (Version None)
Quarter: 2012Q1

REPORT INFORMATION
  Report Type: 
  Country: None (occurrence: None)
  Receive Date: 20120126
  Receipt Date: 20120117
  Transmission Date: 20120608
  Serious: Yes (Hospitalization)
  Sender: FDA-Public Use
  Company Number: US-ASTRAZENECA-2012SE03375

PATIENT
  Age: 30768 Day
  Sex: Male

DRUGS (16)
  1. TAMSULOSIN HCL [Concomitant]
     Indication: BENIGN PROSTATIC HYPERPLASIA
     Route: 048
  2. CRESTOR [Concomitant]
     Indication: HYPERLIPIDAEMIA
     Route: 048
     Dates: end: 20120109
  3. PANTOPRAZOLE [Concomitant]
     Indication: REFLUX GASTRITIS
     Route: 048
     Dates: start: 20120109
  4. LASIX [Concomitant]
     Indication: HYPERTENSION
     Route: 048
  5. ASPIRIN [Concomitant]
     Route: 048
  6. CRESTOR [Concomitant]
     Route: 048
     Dates: start: 20120111
  7. FOLBEE PLUS [Concomitant]
     Indication: VITAMIN SUPPLEMENTATION
     Route: 048
  8. LEVAQUIN [Concomitant]
     Indication: SINUSITIS
     Route: 048
     Dates: start: 20120105, end: 20120108
  9. LOVAZA [Concomitant]
     Indication: CARDIAC DISORDER
     Route: 048
     Dates: start: 20120109
  10. LEVOTHYROXINE SODIUM [Concomitant]
     Indication: THYROID DISORDER
     Route: 048
  11. PLAVIX [Suspect]
     Indication: CORONARY ARTERY DISEASE
     Route: 048
     Dates: start: 20111028, end: 20120108
  12. AMOXICILLIN [Concomitant]
     Indication: SINUSITIS
     Route: 048
     Dates: start: 20120108
  13. PLAVIX [Concomitant]
     Indication: THROMBOSIS PROPHYLAXIS
     Route: 048
     Dates: end: 20111027
  14. MULTI-VITAMIN [Concomitant]
     Indication: VITAMIN SUPPLEMENTATION
     Route: 048
  15. PLAVIX [Concomitant]
     Route: 048
     Dates: start: 20120109, end: 20120111
  16. CARVEDILOL [Concomitant]
     Indication: HYPERTENSION
     Route: 048

REACTIONS (2)
  - RHABDOMYOLYSIS [None]
  - ATRIAL FIBRILLATION [None]
